FAERS Safety Report 24051644 (Version 1)
Quarter: 2024Q3

REPORT INFORMATION
  Report Type: Other
  Country: CN (occurrence: CN)
  Receive Date: 20240704
  Receipt Date: 20240704
  Transmission Date: 20241017
  Serious: No
  Sender: VERITY PHARMACEUTICALS
  Company Number: CN-VER-202400008

PATIENT
  Age: 15 Year
  Sex: Male
  Weight: 69 kg

DRUGS (1)
  1. TESTOSTERONE UNDECANOATE [Suspect]
     Active Substance: TESTOSTERONE UNDECANOATE
     Indication: Secondary hypogonadism
     Dosage: 40 MG ONCE A DAILY / ONE WEEK LATER 40 MG TWICE A DAY IN WEEK / ONE MONTH LATER DOSE WAS 40 MG THREE
     Route: 048

REACTIONS (1)
  - Off label use [Unknown]
